FAERS Safety Report 14003178 (Version 1)
Quarter: 2017Q3

REPORT INFORMATION
  Report Type: Spontaneous
  Country: US (occurrence: US)
  Receive Date: 20170922
  Receipt Date: 20170922
  Transmission Date: 20171128
  Serious: No
  Sender: FDA-Public Use
  Company Number: US-MAYNE PHARMA-2016MYN000628

PATIENT
  Age: 75 Year
  Sex: Female
  Weight: 49.89 kg

DRUGS (6)
  1. ZOCOR [Concomitant]
     Active Substance: SIMVASTATIN
     Dosage: UNK
  2. CLONIDINE. [Suspect]
     Active Substance: CLONIDINE
     Dosage: UNK
     Dates: start: 201512, end: 20160524
  3. REMERON [Concomitant]
     Active Substance: MIRTAZAPINE
     Dosage: 1 PATCH, QWEEK
     Route: 061
     Dates: start: 201512
  4. FOLIC ACID. [Concomitant]
     Active Substance: FOLIC ACID
     Dosage: UNK
  5. CLONIDINE. [Suspect]
     Active Substance: CLONIDINE
     Indication: PRODUCT USED FOR UNKNOWN INDICATION
     Dosage: UNK
     Dates: start: 20160901
  6. CLONIDINE. [Suspect]
     Active Substance: CLONIDINE
     Dosage: UNK
     Dates: start: 20160524, end: 20160901

REACTIONS (2)
  - Application site irritation [Not Recovered/Not Resolved]
  - Application site erythema [Not Recovered/Not Resolved]

NARRATIVE: CASE EVENT DATE: 20160901
